FAERS Safety Report 5386696-9 (Version None)
Quarter: 2007Q3

REPORT INFORMATION
  Report Type: 
  Country: None (occurrence: None)
  Receive Date: 20070713
  Receipt Date: 20070702
  Transmission Date: 20080115
  Serious: Yes (Death, Hospitalization)
  Sender: FDA-Public Use
  Company Number: AU-ROCHE-486617

PATIENT
  Age: 88 Year
  Sex: Male
  Weight: 55 kg

DRUGS (5)
  1. XELODA [Suspect]
     Indication: COLORECTAL CANCER
     Dosage: REPORTED THAT CAPECITABINE WAS ^STARTED AT A LOWER DOSE THAN NORMAL^. FIRST CYCLE.
     Route: 048
  2. XELODA [Suspect]
     Dosage: SECOND CYCLE.
     Route: 048
     Dates: start: 20070129, end: 20070201
  3. OXALIPLATIN [Suspect]
     Dosage: REPORTED THAT OXALIPLATIN WAS STARTED AT ^A LOWER DOSE THAN NORMAL^ AND THAT THE DOSE WAS REDUCED A+
     Route: 042
  4. OXALIPLATIN [Suspect]
     Dosage: DOSING REGIMEN: CYCLICAL.
     Route: 042
     Dates: start: 20070129
  5. FLUOROURACIL [Concomitant]
     Dosage: FORM REPORTED AS BOLUS.

REACTIONS (3)
  - DEHYDRATION [None]
  - DIARRHOEA [None]
  - SEPSIS [None]
